FAERS Safety Report 7553423-6 (Version None)
Quarter: 2011Q2

REPORT INFORMATION
  Report Type: 
  Country: None (occurrence: None)
  Receive Date: 20110617
  Receipt Date: 20110603
  Transmission Date: 20111010
  Serious: Yes (Hospitalization)
  Sender: FDA-Public Use
  Company Number: DE-RANBAXY-2009RR-22253

PATIENT
  Age: 66 Year
  Sex: Male
  Weight: 54 kg

DRUGS (10)
  1. STEROFUNDIN [Concomitant]
     Dosage: 1000 ML, BID
     Dates: start: 20081112
  2. MESALAMINE [Concomitant]
     Dosage: 4 G, QD
     Dates: start: 20081106
  3. CLINDAMYCIN [Suspect]
     Indication: WOUND INFECTION
     Dosage: 600 MG, UNK
     Route: 048
     Dates: start: 20081007, end: 20081025
  4. PANTOPRAZOLE [Concomitant]
     Dosage: UNK
     Dates: start: 20081103
  5. IBUPROFEN [Suspect]
     Indication: BONE PAIN
     Dosage: 800 MG, QD
     Route: 048
     Dates: start: 20080910, end: 20081104
  6. NEXIUM [Concomitant]
     Indication: ABDOMINAL DISCOMFORT
     Dosage: 20 MG, QD
     Route: 048
  7. STEROFUNDIN [Concomitant]
     Dosage: 1500 ML, UNK
     Dates: start: 20081103
  8. VANCOMYCIN [Concomitant]
     Dosage: 500 MG, TID
  9. VAGIMID [Concomitant]
     Dosage: 500 MG, QID
     Dates: start: 20081103, end: 20081113
  10. MCP [Concomitant]
     Dosage: 10 MG, TID

REACTIONS (2)
  - PSEUDOMEMBRANOUS COLITIS [None]
  - DIARRHOEA [None]
